FAERS Safety Report 9733543 (Version 2)
Quarter: 2014Q1

REPORT INFORMATION
  Report Type: Spontaneous
  Country: GB (occurrence: GB)
  Receive Date: 20131205
  Receipt Date: 20140211
  Transmission Date: 20141002
  Serious: Yes (Death, Hospitalization)
  Sender: FDA-Public Use
  Company Number: GB-ROCHE-1310809

PATIENT
  Age: 47 Year
  Sex: Female
  Weight: 157 kg

DRUGS (15)
  1. MYCOPHENOLATE MOFETIL [Suspect]
     Indication: INTERSTITIAL LUNG DISEASE
     Route: 048
     Dates: start: 20130515, end: 20130829
  2. PREDNISOLONE [Suspect]
     Indication: PRODUCT USED FOR UNKNOWN INDICATION
     Route: 048
     Dates: start: 201202
  3. STELARA [Suspect]
     Indication: PRODUCT USED FOR UNKNOWN INDICATION
     Route: 058
     Dates: start: 20130717, end: 20130823
  4. ALENDRONIC ACID [Concomitant]
  5. CALCICHEW D3 [Concomitant]
  6. CODEINE PHOSPHATE [Concomitant]
  7. KETOROLAC [Concomitant]
  8. LEVOTHYROXINE [Concomitant]
  9. MAXITROL [Concomitant]
  10. NAPROXEN [Concomitant]
  11. OMEPRAZOLE [Concomitant]
  12. PROPRANOLOL [Concomitant]
  13. SERETIDE [Concomitant]
  14. SERTRALINE [Concomitant]
  15. URSODEOXYCHOLIC ACID [Concomitant]

REACTIONS (7)
  - Encephalitis [Fatal]
  - Candida infection [Not Recovered/Not Resolved]
  - Brain oedema [Not Recovered/Not Resolved]
  - Respiratory failure [Not Recovered/Not Resolved]
  - Convulsion [Not Recovered/Not Resolved]
  - Septic arthritis staphylococcal [Not Recovered/Not Resolved]
  - Status epilepticus [Fatal]
